FAERS Safety Report 6846352-4 (Version None)
Quarter: 2010Q3

REPORT INFORMATION
  Report Type: 
  Country: None (occurrence: None)
  Receive Date: 20100715
  Receipt Date: 20091118
  Transmission Date: 20110219
  Serious: No
  Sender: FDA-Public Use
  Company Number: US-PFIZER INC-2007078085

PATIENT
  Age: 65 Year
  Sex: Female
  Weight: 64.399 kg

DRUGS (5)
  1. CHANTIX [Suspect]
     Indication: SMOKING CESSATION THERAPY
     Dosage: UNK
     Route: 048
     Dates: start: 20090911
  2. ACCUPRIL [Concomitant]
     Indication: HYPERTENSION
     Dosage: UNK
  3. SYNTHROID [Concomitant]
     Indication: THYROID DISORDER
     Dosage: UNK
  4. CADUET [Concomitant]
     Indication: THROMBOSIS
     Dosage: UNK
     Route: 048
     Dates: start: 20090101
  5. ACETYLSALICYLIC ACID [Concomitant]
     Dosage: UNK
     Route: 048

REACTIONS (5)
  - EAR INFECTION [None]
  - EMOTIONAL DISORDER [None]
  - INSOMNIA [None]
  - OTORRHOEA [None]
  - TENSION [None]
